FAERS Safety Report 24329946 (Version 1)
Quarter: 2024Q3

REPORT INFORMATION
  Report Type: Spontaneous
  Country: US (occurrence: US)
  Receive Date: 20240917
  Receipt Date: 20240917
  Transmission Date: 20241016
  Serious: No
  Sender: SANOFI AVENTIS
  Company Number: US-SA-2024SA266408

PATIENT
  Sex: Male

DRUGS (5)
  1. DUPIXENT [Suspect]
     Active Substance: DUPILUMAB
     Indication: Nasal polyps
     Dosage: 300 MG, QOW
     Route: 065
  2. CYCLOBENZAPRINE [Concomitant]
     Active Substance: CYCLOBENZAPRINE
  3. LEVOTHYROXINE [Concomitant]
     Active Substance: LEVOTHYROXINE\LEVOTHYROXINE SODIUM
  4. OLANZAPINE [Concomitant]
     Active Substance: OLANZAPINE
  5. PALIPERIDONE [Concomitant]
     Active Substance: PALIPERIDONE

REACTIONS (3)
  - Pain in extremity [Unknown]
  - Injection site pain [Not Recovered/Not Resolved]
  - Wrong technique in product usage process [Unknown]
